FAERS Safety Report 7134066-5 (Version None)
Quarter: 2010Q4

REPORT INFORMATION
  Report Type: 
  Country: None (occurrence: None)
  Receive Date: 20101203
  Receipt Date: 20101124
  Transmission Date: 20110411
  Serious: Yes (Death, Hospitalization)
  Sender: FDA-Public Use
  Company Number: US-BRISTOL-MYERS SQUIBB COMPANY-15400047

PATIENT
  Age: 84 Year
  Sex: Male
  Weight: 94 kg

DRUGS (12)
  1. CARBOPLATIN [Suspect]
     Indication: NON-SMALL CELL LUNG CANCER
     Dosage: PULLED OFF 16APR2009 6DF:6AUC
     Route: 042
     Dates: start: 20090326, end: 20090326
  2. PACLITAXEL [Suspect]
     Indication: NON-SMALL CELL LUNG CANCER
     Dosage: PULLED OFF 16APR2009
     Route: 042
     Dates: start: 20090326, end: 20090326
  3. DOXAZOSIN MESYLATE [Concomitant]
  4. CLONIDINE [Concomitant]
  5. TRAMADOL HCL [Concomitant]
  6. SIMVASTATIN [Concomitant]
  7. PERCOCET [Concomitant]
     Dates: start: 20090402
  8. DETROL LA [Concomitant]
     Dates: start: 20090312
  9. MIRTAZAPINE [Concomitant]
     Dates: start: 20090402
  10. METOCLOPRAMIDE [Concomitant]
     Dates: start: 20090326
  11. ONDANSETRON [Concomitant]
     Dates: start: 20090326
  12. OXYCODONE HCL [Concomitant]
     Dates: start: 20090402

REACTIONS (2)
  - DEATH [None]
  - FAECALOMA [None]
